FAERS Safety Report 12453934 (Version 1)
Quarter: 2016Q2

REPORT INFORMATION
  Report Type: Report from Study
  Country: BG (occurrence: BG)
  Receive Date: 20160609
  Receipt Date: 20160609
  Transmission Date: 20160815
  Serious: Yes (Hospitalization)
  Sender: FDA-Public Use
  Company Number: BG-ASTRAZENECA-2016SE60120

PATIENT
  Age: 27951 Day
  Sex: Female

DRUGS (6)
  1. TICAGRELOR [Suspect]
     Active Substance: TICAGRELOR
     Indication: CARDIOVASCULAR EVENT PROPHYLAXIS
     Route: 048
     Dates: start: 20151022, end: 20160214
  2. VALSAVIL COMP [Concomitant]
     Indication: HYPERTENSION
     Route: 048
     Dates: end: 20160214
  3. INSULIN [Concomitant]
     Active Substance: INSULIN NOS
     Indication: DIABETES MELLITUS
     Route: 058
     Dates: end: 20160214
  4. TICAGRELOR [Suspect]
     Active Substance: TICAGRELOR
     Indication: CARDIOVASCULAR EVENT PROPHYLAXIS
     Route: 048
     Dates: start: 20141022, end: 20151022
  5. ATORVISTAT K [Concomitant]
     Indication: DYSLIPIDAEMIA
     Route: 048
     Dates: end: 20160214
  6. CARDIOSTAD [Concomitant]
     Active Substance: LISINOPRIL
     Indication: ANGINA PECTORIS
     Route: 048
     Dates: end: 20160214

REACTIONS (1)
  - Angina unstable [Recovered/Resolved]

NARRATIVE: CASE EVENT DATE: 20160207
